FAERS Safety Report 8123166-9 (Version None)
Quarter: 2012Q1

REPORT INFORMATION
  Report Type: 
  Country: None (occurrence: None)
  Receive Date: 20120208
  Receipt Date: 20120201
  Transmission Date: 20120608
  Serious: Yes (Hospitalization, Other)
  Sender: FDA-Public Use
  Company Number: US-CTI_01007_2009

PATIENT
  Sex: Female
  Weight: 63 kg

DRUGS (3)
  1. IBUPROFEN (ADVIL) [Concomitant]
     Indication: HEADACHE
  2. YASMIN [Concomitant]
     Dosage: (EVERY DAY)
  3. SPECTRACEF [Suspect]
     Indication: SINUSITIS
     Dosage: 400 MG (1 EVERY 12 HOURS)
     Dates: start: 20090325, end: 20090329

REACTIONS (6)
  - PYREXIA [None]
  - COLITIS ULCERATIVE [None]
  - PRODUCT QUALITY ISSUE [None]
  - COLITIS [None]
  - VOMITING [None]
  - CHILLS [None]
